FAERS Safety Report 25798024 (Version 1)
Quarter: 2025Q3

REPORT INFORMATION
  Report Type: Report from Study
  Country: EU (occurrence: EU)
  Receive Date: 20250912
  Receipt Date: 20250912
  Transmission Date: 20251020
  Serious: Yes (Hospitalization)
  Sender: ABBVIE
  Company Number: EU-ABBVIE-6377875

PATIENT
  Age: 76 Year
  Sex: Female

DRUGS (4)
  1. RINVOQ [Suspect]
     Active Substance: UPADACITINIB
     Indication: Rheumatoid arthritis
     Route: 048
     Dates: start: 20250423, end: 20250805
  2. RAMIPRIL [Concomitant]
     Active Substance: RAMIPRIL
     Indication: Hypertension
     Route: 048
     Dates: start: 2014
  3. LERCANIDIPINE HYDROCHLORIDE [Suspect]
     Active Substance: LERCANIDIPINE HYDROCHLORIDE
     Indication: Blood pressure measurement
     Route: 065
     Dates: end: 20250715
  4. LOSARTAN [Suspect]
     Active Substance: LOSARTAN
     Indication: Blood pressure measurement
     Route: 065
     Dates: end: 20250715

REACTIONS (5)
  - Pancreatic carcinoma [Not Recovered/Not Resolved]
  - Dizziness [Recovering/Resolving]
  - Fatigue [Recovering/Resolving]
  - Dyspepsia [Recovering/Resolving]
  - Nausea [Recovering/Resolving]

NARRATIVE: CASE EVENT DATE: 20250524
